FAERS Safety Report 9435336 (Version 1)
Quarter: 2013Q3

REPORT INFORMATION
  Report Type: Spontaneous
  Country: US (occurrence: US)
  Receive Date: 20130801
  Receipt Date: 20130801
  Transmission Date: 20140515
  Serious: Yes (Hospitalization)
  Sender: FDA-Public Use
  Company Number: US-JNJFOC-20130713150

PATIENT
  Sex: Female
  Weight: 78.62 kg

DRUGS (2)
  1. TYLOX [Suspect]
     Indication: PAIN
     Dosage: 5-10MG
     Route: 048
     Dates: start: 20130213
  2. MORPHINE SULFATE [Suspect]
     Indication: PAIN
     Dosage: 26-30MG
     Route: 048
     Dates: start: 20130213

REACTIONS (9)
  - Dehydration [Unknown]
  - Fall [Recovering/Resolving]
  - Immobile [Recovering/Resolving]
  - Pneumonia [Unknown]
  - Hypernatraemia [Unknown]
  - Rhabdomyolysis [Unknown]
  - Urinary tract infection [Unknown]
  - Renal failure acute [Unknown]
  - Tachycardia [Unknown]
